FAERS Safety Report 8623740-7 (Version None)
Quarter: 2012Q3

REPORT INFORMATION
  Report Type: 
  Country: None (occurrence: None)
  Receive Date: 20120824
  Receipt Date: 20120824
  Transmission Date: 20120928
  Serious: Yes (Death)
  Sender: FDA-Public Use
  Company Number: None

PATIENT
  Age: 60 Year
  Sex: Female
  Weight: 81 kg

DRUGS (2)
  1. FUROSEMIDE [Suspect]
     Dosage: 40 MG DAILY PO
     Route: 048
  2. METOLAZONE [Suspect]
     Dosage: 5 MG TWICE WEEKLY PO
     Route: 048

REACTIONS (2)
  - UNRESPONSIVE TO STIMULI [None]
  - CARDIAC ARREST [None]
